FAERS Safety Report 12775372 (Version 1)
Quarter: 2016Q3

REPORT INFORMATION
  Report Type: Spontaneous
  Country: US (occurrence: US)
  Receive Date: 20160922
  Receipt Date: 20160922
  Transmission Date: 20161109
  Serious: Yes (Disabling, Other)
  Sender: FDA-Public Use
  Company Number: None

PATIENT
  Age: 20 Year
  Sex: Male

DRUGS (7)
  1. SERTRALINE [Concomitant]
     Active Substance: SERTRALINE HYDROCHLORIDE
  2. ABILIFY [Suspect]
     Active Substance: ARIPIPRAZOLE
     Indication: ATTENTION DEFICIT/HYPERACTIVITY DISORDER
     Dosage: 1 PILL AM - THEN 1 AM 1 PM IN THE MORNINGS 2AM MOUTH
     Route: 048
     Dates: start: 20100801, end: 20140718
  3. METOPROLOL. [Concomitant]
     Active Substance: METOPROLOL
  4. ABILIFY [Suspect]
     Active Substance: ARIPIPRAZOLE
     Indication: DEPRESSION
     Dosage: 1 PILL AM - THEN 1 AM 1 PM IN THE MORNINGS 2AM MOUTH
     Route: 048
     Dates: start: 20100801, end: 20140718
  5. BUPROPION. [Concomitant]
     Active Substance: BUPROPION
  6. CONCERTA [Concomitant]
     Active Substance: METHYLPHENIDATE HYDROCHLORIDE
  7. VIT B 12 [Concomitant]

REACTIONS (12)
  - Hypersexuality [None]
  - Abnormal behaviour [None]
  - Hyperphagia [None]
  - Gambling disorder [None]
  - Impaired work ability [None]
  - Economic problem [None]
  - Legal problem [None]
  - Hypertension [None]
  - Obesity [None]
  - Attention deficit/hyperactivity disorder [None]
  - Condition aggravated [None]
  - Compulsive shopping [None]

NARRATIVE: CASE EVENT DATE: 20100812
